FAERS Safety Report 20975774 (Version 1)
Quarter: 2022Q2

REPORT INFORMATION
  Report Type: Spontaneous
  Country: US (occurrence: US)
  Receive Date: 20220617
  Receipt Date: 20220617
  Transmission Date: 20220721
  Serious: Yes (Other)
  Sender: FDA-Public Use
  Company Number: US-MYLANLABS-2022M1045792

PATIENT
  Age: 71 Year

DRUGS (3)
  1. METFORMIN [Suspect]
     Active Substance: METFORMIN HYDROCHLORIDE
     Indication: Product used for unknown indication
     Dosage: UNK
  2. GLIPIZIDE [Suspect]
     Active Substance: GLIPIZIDE
     Indication: Product used for unknown indication
     Dosage: UNK
  3. FARXIGA [Concomitant]
     Active Substance: DAPAGLIFLOZIN PROPANEDIOL
     Dosage: UNK

REACTIONS (5)
  - Diabetes mellitus [Unknown]
  - Glycosylated haemoglobin increased [Unknown]
  - Urine analysis abnormal [Unknown]
  - Blood glucose increased [Unknown]
  - Back pain [Unknown]

NARRATIVE: CASE EVENT DATE: 20220501
